FAERS Safety Report 8395926 (Version 2)
Quarter: 2013Q4

REPORT INFORMATION
  Report Type: Spontaneous
  Country: US (occurrence: US)
  Receive Date: 20120208
  Receipt Date: 20131009
  Transmission Date: 20140711
  Serious: Yes (Other)
  Sender: FDA-Public Use
  Company Number: US-ROCHE-794408

PATIENT
  Sex: Female
  Weight: 108.96 kg

DRUGS (2)
  1. ACCUTANE [Suspect]
     Indication: ACNE
     Route: 048
  2. ACCUTANE [Suspect]
     Route: 048

REACTIONS (6)
  - Colitis [Unknown]
  - Inflammatory bowel disease [Unknown]
  - Diverticulitis [Unknown]
  - Irritable bowel syndrome [Unknown]
  - Intestinal obstruction [Unknown]
  - Depression [Unknown]
